FAERS Safety Report 15104328 (Version 6)
Quarter: 2019Q1

REPORT INFORMATION
  Report Type: Spontaneous
  Country: US (occurrence: US)
  Receive Date: 20180703
  Receipt Date: 20190110
  Transmission Date: 20190417
  Serious: Yes (Death, Life-Threatening, Hospitalization)
  Sender: FDA-Public Use
  Company Number: US-ACTELION-A-US2018-174766

PATIENT
  Age: 61 Year
  Sex: Female

DRUGS (3)
  1. OXYGEN. [Concomitant]
     Active Substance: OXYGEN
     Dosage: 4 L, 24 HRS
     Route: 045
  2. OPSUMIT [Suspect]
     Active Substance: MACITENTAN
     Indication: PULMONARY ARTERIAL HYPERTENSION
     Dosage: 10 MG, QD
     Route: 048
  3. ADEMPAS [Concomitant]
     Active Substance: RIOCIGUAT
     Dosage: 1.5 MG, TID

REACTIONS (11)
  - Death [Fatal]
  - Haemoptysis [Unknown]
  - Hypotension [Unknown]
  - Malaise [Unknown]
  - Hypoxia [Unknown]
  - Dizziness [Unknown]
  - Feeling hot [Unknown]
  - Dyspnoea [Unknown]
  - Wheezing [Recovering/Resolving]
  - Gastrooesophageal reflux disease [Unknown]
  - Acute respiratory failure [Unknown]

NARRATIVE: CASE EVENT DATE: 20180602
